FAERS Safety Report 22269765 (Version 5)
Quarter: 2023Q4

REPORT INFORMATION
  Report Type: Report from Study
  Country: FR (occurrence: FR)
  Receive Date: 20230501
  Receipt Date: 20231107
  Transmission Date: 20240109
  Serious: Yes (Hospitalization, Other)
  Sender: FDA-Public Use
  Company Number: FR-AMGEN-FRACT2023072051

PATIENT
  Age: 82 Year
  Sex: Female
  Weight: 60 kg

DRUGS (15)
  1. CARFILZOMIB [Suspect]
     Active Substance: CARFILZOMIB
     Indication: Plasma cell myeloma
     Dosage: 32 MILLIGRAM, PER CHEMO REGIM
     Route: 042
     Dates: start: 20220413
  2. CARFILZOMIB [Suspect]
     Active Substance: CARFILZOMIB
     Dosage: 90 MILLIGRAM, PER CHEMO REGIM
     Route: 042
     Dates: start: 20230525
  3. ISATUXIMAB [Suspect]
     Active Substance: ISATUXIMAB
     Indication: Plasma cell myeloma
     Dosage: 640 MILLIGRAM, PER CHEMO REGIM
     Route: 042
     Dates: start: 20220413
  4. ISATUXIMAB [Suspect]
     Active Substance: ISATUXIMAB
     Dosage: 600 MILLIGRAM, PER CHEMO REGIM
     Route: 042
     Dates: start: 20230525
  5. POMALIDOMIDE [Suspect]
     Active Substance: POMALIDOMIDE
     Indication: Plasma cell myeloma
     Dosage: 3 MILLIGRAM, PER CHEMO REGIM
     Route: 048
     Dates: start: 20220413
  6. POMALIDOMIDE [Suspect]
     Active Substance: POMALIDOMIDE
     Dosage: 4 MILLIGRAM, PER CHEMO REGIM
     Route: 048
     Dates: start: 20230525
  7. DEXAMETHASONE [Concomitant]
     Active Substance: DEXAMETHASONE
     Indication: Plasma cell myeloma
     Dosage: 20 MILLIGRAM
     Dates: start: 20220413, end: 20230406
  8. BACTRIM [Concomitant]
     Active Substance: SULFAMETHOXAZOLE\TRIMETHOPRIM
     Indication: Infection prophylaxis
     Dosage: 800/160 MILLIGRAM
     Route: 048
     Dates: start: 20220428
  9. LEUCOVORIN CALCIUM [Concomitant]
     Active Substance: LEUCOVORIN CALCIUM
     Indication: Anaemia prophylaxis
     Dosage: 25 MILLIGRAM, QWK
     Route: 048
     Dates: start: 20200923
  10. VALACYCLOVIR [Concomitant]
     Active Substance: VALACYCLOVIR HYDROCHLORIDE
     Dosage: 500 MILLIGRAM, BID
     Route: 048
     Dates: start: 20220428
  11. BISOPROLOL [Concomitant]
     Active Substance: BISOPROLOL\BISOPROLOL FUMARATE
     Indication: Atrial fibrillation
     Dosage: 25 MILLIGRAM, QD
     Route: 048
     Dates: start: 20220423
  12. APIXABAN [Concomitant]
     Active Substance: APIXABAN
     Dosage: 5 MILLIGRAM, BID
     Route: 048
     Dates: start: 20220520
  13. SULFAMETHOXAZOLE [Concomitant]
     Active Substance: SULFAMETHOXAZOLE
     Dosage: UNK
  14. TRIMETHOPRIM [Concomitant]
     Active Substance: TRIMETHOPRIM
     Dosage: UNK
  15. LEUCOVORIN CALCIUM [Concomitant]
     Active Substance: LEUCOVORIN CALCIUM
     Dosage: 25 MILLIGRAM
     Route: 048
     Dates: start: 20100923

REACTIONS (2)
  - COVID-19 pneumonia [Recovered/Resolved]
  - Septic shock [Recovered/Resolved]

NARRATIVE: CASE EVENT DATE: 20230413
